FAERS Safety Report 18570263 (Version 1)
Quarter: 2020Q4

REPORT INFORMATION
  Report Type: Spontaneous
  Country: US (occurrence: US)
  Receive Date: 20201202
  Receipt Date: 20201202
  Transmission Date: 20210114
  Serious: Yes (Death)
  Sender: FDA-Public Use
  Company Number: None

PATIENT
  Age: 83 Year
  Sex: Male
  Weight: 94 kg

DRUGS (1)
  1. BARICITINIB (BARICITINIB 1MG TAB) [Suspect]
     Active Substance: BARICITINIB
     Indication: UPPER RESPIRATORY TRACT INFECTION
     Dosage: ?          OTHER FREQUENCY:PM;?
     Route: 048
     Dates: start: 20201126

REACTIONS (1)
  - Thrombosis [None]

NARRATIVE: CASE EVENT DATE: 20201129
